FAERS Safety Report 5437651-1 (Version None)
Quarter: 2007Q3

REPORT INFORMATION
  Report Type: 
  Country: None (occurrence: None)
  Receive Date: 20070831
  Receipt Date: 20070730
  Transmission Date: 20080115
  Serious: No
  Sender: FDA-Public Use
  Company Number: A0666637A

PATIENT
  Age: 60 Year
  Sex: Female

DRUGS (2)
  1. ALLI [Suspect]
     Route: 048
  2. TRIPHALA COMPOUND [Concomitant]
     Indication: CONSTIPATION

REACTIONS (8)
  - ABDOMINAL PAIN [None]
  - ABDOMINAL PAIN UPPER [None]
  - CONSTIPATION [None]
  - DEFAECATION URGENCY [None]
  - FAECAL VOLUME DECREASED [None]
  - FREQUENT BOWEL MOVEMENTS [None]
  - OBSTRUCTION [None]
  - RECTAL DISCHARGE [None]
